FAERS Safety Report 16838801 (Version 2)
Quarter: 2019Q4

REPORT INFORMATION
  Report Type: Other
  Country: US (occurrence: US)
  Receive Date: 20190923
  Receipt Date: 20191001
  Transmission Date: 20200122
  Serious: Yes (Hospitalization, Other)
  Sender: FDA-Public Use
  Company Number: US-AMAG PHARMACEUTICALS, INC.-AMAG201904780

PATIENT
  Age: 0 Day
  Sex: Male

DRUGS (2)
  1. MAKENA [Suspect]
     Active Substance: HYDROXYPROGESTERONE CAPROATE
     Indication: PREMATURE DELIVERY
  2. MAKENA [Suspect]
     Active Substance: HYDROXYPROGESTERONE CAPROATE
     Indication: FOETAL EXPOSURE DURING DELIVERY
     Route: 064
     Dates: end: 20190805

REACTIONS (1)
  - Premature baby [Unknown]

NARRATIVE: CASE EVENT DATE: 20190830
